FAERS Safety Report 8516646-5 (Version None)
Quarter: 2012Q2

REPORT INFORMATION
  Report Type: 
  Country: None (occurrence: None)
  Receive Date: 20120406
  Receipt Date: 20090507
  Transmission Date: 20120825
  Serious: Yes (Other)
  Sender: FDA-Public Use
  Company Number: PHEH2009US04580

PATIENT
  Age: 72 Year
  Sex: Male

DRUGS (2)
  1. TASIGNA [Suspect]
     Indication: CHRONIC MYELOID LEUKAEMIA
  2. TASIGNA [Suspect]
     Indication: PULMONARY HYPERTENSION

REACTIONS (1)
  - ELECTROCARDIOGRAM QT PROLONGED [None]
